FAERS Safety Report 9330604 (Version 2)
Quarter: 2013Q4

REPORT INFORMATION
  Report Type: Spontaneous
  Country: US (occurrence: US)
  Receive Date: 20130605
  Receipt Date: 20131018
  Transmission Date: 20140711
  Serious: Yes (Hospitalization)
  Sender: FDA-Public Use
  Company Number: US-B.I. PHARMACEUTICALS,INC./RIDGEFIELD-2013-BI-15449BP

PATIENT
  Age: 71 Year
  Sex: Female
  Weight: 47.17 kg

DRUGS (4)
  1. PRADAXA [Suspect]
     Indication: ATRIAL FIBRILLATION
     Dosage: 300 MG
     Route: 048
     Dates: start: 20120113, end: 20120122
  2. ASPIRIN [Concomitant]
  3. METOPROLOL [Concomitant]
  4. ENALAPRIL [Concomitant]

REACTIONS (4)
  - Oesophagitis ulcerative [Unknown]
  - Atrial fibrillation [Recovered/Resolved]
  - Haemoptysis [Unknown]
  - Epistaxis [Unknown]
